FAERS Safety Report 10601356 (Version 1)
Quarter: 2014Q4

REPORT INFORMATION
  Report Type: Spontaneous
  Country: US (occurrence: US)
  Receive Date: 20141124
  Receipt Date: 20141124
  Transmission Date: 20150529
  Serious: Yes (Other)
  Sender: FDA-Public Use
  Company Number: US-BAYER-2014-170380

PATIENT
  Age: 33 Year
  Sex: Female
  Weight: 63.39 kg

DRUGS (15)
  1. OCELLA [Suspect]
     Active Substance: DROSPIRENONE\ETHINYL ESTRADIOL
  2. HYDROCODONE/ACETAMINOPHEN [Concomitant]
     Active Substance: ACETAMINOPHEN\HYDROCODONE
     Dosage: 5-500 MG
     Dates: start: 20100216
  3. AUGMENTIN [Concomitant]
     Active Substance: AMOXICILLIN\CLAVULANATE POTASSIUM
     Indication: ACUTE SINUSITIS
     Dosage: 875 Q 12 HRS
  4. ADVAIR HFA [Concomitant]
     Active Substance: FLUTICASONE PROPIONATE\SALMETEROL XINAFOATE
     Indication: COUGH
  5. ALBUTEROL. [Concomitant]
     Active Substance: ALBUTEROL
     Indication: COUGH
  6. ALPRAZOLAM. [Concomitant]
     Active Substance: ALPRAZOLAM
     Dosage: 0.5 MG, UNK
     Dates: start: 20100104
  7. IBUPROFEN. [Concomitant]
     Active Substance: IBUPROFEN
     Indication: ACUTE SINUSITIS
     Dosage: 600-1200 MG PER DAY
  8. IBUPROFEN. [Concomitant]
     Active Substance: IBUPROFEN
     Indication: MUSCULOSKELETAL DISCOMFORT
  9. MUCINEX [Concomitant]
     Active Substance: GUAIFENESIN
     Indication: SINUSITIS
     Dosage: UNK
  10. SUDAFED [Concomitant]
     Active Substance: PSEUDOEPHEDRINE HYDROCHLORIDE
     Indication: SINUSITIS
     Dosage: UNK
  11. MUCINEX [Concomitant]
     Active Substance: GUAIFENESIN
     Indication: COUGH
  12. ALBUTEROL. [Concomitant]
     Active Substance: ALBUTEROL
     Indication: SINUSITIS
     Dosage: UNK
  13. ADVAIR HFA [Concomitant]
     Active Substance: FLUTICASONE PROPIONATE\SALMETEROL XINAFOATE
     Indication: SINUSITIS
     Dosage: UNK
  14. YASMIN [Suspect]
     Active Substance: DROSPIRENONE\ETHINYL ESTRADIOL
  15. SUDAFED [Concomitant]
     Active Substance: PSEUDOEPHEDRINE HYDROCHLORIDE
     Indication: COUGH

REACTIONS (1)
  - Peripheral artery thrombosis [Recovering/Resolving]

NARRATIVE: CASE EVENT DATE: 20100328
